FAERS Safety Report 25024480 (Version 2)
Quarter: 2025Q4

REPORT INFORMATION
  Report Type: Spontaneous
  Country: US (occurrence: US)
  Receive Date: 20250228
  Receipt Date: 20251008
  Transmission Date: 20260117
  Serious: Yes (Death, Other)
  Sender: PFIZER
  Company Number: US-PFIZER INC-202500044825

PATIENT
  Age: 80 Year
  Sex: Female
  Weight: 63.5 kg

DRUGS (1)
  1. IBRANCE [Suspect]
     Active Substance: PALBOCICLIB
     Dosage: 100 MG

REACTIONS (3)
  - Death [Fatal]
  - Second primary malignancy [Unknown]
  - Lymphoma [Unknown]

NARRATIVE: CASE EVENT DATE: 20250309
